FAERS Safety Report 9386945 (Version 1)
Quarter: 2013Q3

REPORT INFORMATION
  Report Type: Spontaneous
  Country: BR (occurrence: BR)
  Receive Date: 20130708
  Receipt Date: 20130708
  Transmission Date: 20140515
  Serious: No
  Sender: FDA-Public Use
  Company Number: BR-ROCHE-1245749

PATIENT
  Age: 2 Year
  Sex: Male

DRUGS (1)
  1. TAMIFLU [Suspect]
     Indication: PRODUCT USED FOR UNKNOWN INDICATION
     Route: 065
     Dates: start: 20130628

REACTIONS (4)
  - Glossodynia [Not Recovered/Not Resolved]
  - Cheilitis [Not Recovered/Not Resolved]
  - Nausea [Not Recovered/Not Resolved]
  - Medication error [Unknown]
